FAERS Safety Report 5587921-1 (Version None)
Quarter: 2008Q1

REPORT INFORMATION
  Report Type: 
  Country: None (occurrence: None)
  Receive Date: 20080111
  Receipt Date: 20070924
  Transmission Date: 20080703
  Serious: No
  Sender: FDA-Public Use
  Company Number: US-KINGPHARMUSA00001-K200701236

PATIENT

DRUGS (3)
  1. INTAL [Suspect]
     Indication: ASTHMA
     Dosage: UNK, QID
     Dates: start: 20060301
  2. VITAMINS [Concomitant]
  3. CALCIUM GLUCONATE [Concomitant]

REACTIONS (2)
  - COUGH [None]
  - DRUG EFFECT DECREASED [None]
